FAERS Safety Report 5779539-2 (Version None)
Quarter: 2008Q2

REPORT INFORMATION
  Report Type: 
  Country: None (occurrence: None)
  Receive Date: 20080616
  Receipt Date: 20080604
  Transmission Date: 20081010
  Serious: Yes (Death, Life-Threatening)
  Sender: FDA-Public Use
  Company Number: GXKR2008ES05113

PATIENT
  Age: 48 Year
  Sex: Male

DRUGS (4)
  1. CYCLOSPORINE [Suspect]
     Indication: PROPHYLAXIS AGAINST GRAFT VERSUS HOST DISEASE
     Dosage: 50 MG BID
  2. PREDNISONE [Suspect]
     Indication: PROPHYLAXIS AGAINST GRAFT VERSUS HOST DISEASE
     Dosage: 60 MG/DAY
  3. METHYLPREDNISOLONE                 (METHYLPREDNISOLONE) UNKNOWN [Suspect]
     Indication: GRAFT VERSUS HOST DISEASE
     Dosage: 2 MG/KG
  4. CORTICOSTEROID                 (CORTICOSTEROID NOS) [Concomitant]

REACTIONS (14)
  - ACANTHAMOEBA INFECTION [None]
  - BRAIN HERNIATION [None]
  - BRAIN OEDEMA [None]
  - CYTOMEGALOVIRUS INFECTION [None]
  - DIPLOPIA [None]
  - ENCEPHALITIS [None]
  - GAIT DISTURBANCE [None]
  - GENERAL PHYSICAL HEALTH DETERIORATION [None]
  - HYPOREFLEXIA [None]
  - NEUROLOGICAL SYMPTOM [None]
  - NYSTAGMUS [None]
  - PNEUMONIA [None]
  - POSITIVE ROMBERGISM [None]
  - RESPIRATORY FAILURE [None]
